FAERS Safety Report 17868355 (Version 1)
Quarter: 2020Q2

REPORT INFORMATION
  Report Type: Spontaneous
  Country: CA (occurrence: CA)
  Receive Date: 20200606
  Receipt Date: 20200606
  Transmission Date: 20200714
  Serious: Yes (Life-Threatening, Hospitalization)
  Sender: FDA-Public Use
  Company Number: CA-ROCHE-2612321

PATIENT
  Age: 55 Year
  Sex: Female

DRUGS (11)
  1. IRINOTECAN HYDROCHLORIDE. [Suspect]
     Active Substance: IRINOTECAN HYDROCHLORIDE
     Indication: COLORECTAL CANCER METASTATIC
     Route: 042
  2. HALOPERIDOL. [Concomitant]
     Active Substance: HALOPERIDOL
  3. ONDANSETRON [Concomitant]
     Active Substance: ONDANSETRON
  4. BEVACIZUMAB. [Suspect]
     Active Substance: BEVACIZUMAB
     Indication: COLORECTAL CANCER METASTATIC
     Route: 065
  5. FLUOROURACIL. [Suspect]
     Active Substance: FLUOROURACIL
     Indication: COLORECTAL CANCER METASTATIC
     Route: 042
  6. METOCLOPRAMIDE. [Concomitant]
     Active Substance: METOCLOPRAMIDE
     Indication: NAUSEA
  7. FOLINIC ACID [Concomitant]
     Active Substance: LEUCOVORIN
  8. HYDROMORPHONE [Concomitant]
     Active Substance: HYDROMORPHONE
  9. OXALIPLATIN. [Concomitant]
     Active Substance: OXALIPLATIN
  10. APREPITANT. [Concomitant]
     Active Substance: APREPITANT
     Route: 065
  11. RAMIPRIL. [Concomitant]
     Active Substance: RAMIPRIL

REACTIONS (6)
  - Neoplasm progression [Unknown]
  - Nausea [Unknown]
  - Hypertension [Unknown]
  - Pain in extremity [Unknown]
  - Anxiety [Unknown]
  - Gastrointestinal anastomotic leak [Unknown]
